FAERS Safety Report 18753450 (Version 1)
Quarter: 2021Q1

REPORT INFORMATION
  Report Type: Spontaneous
  Country: US (occurrence: US)
  Receive Date: 20210118
  Receipt Date: 20210118
  Transmission Date: 20210419
  Serious: No
  Sender: FDA-Public Use
  Company Number: US-PFIZER INC-2021030886

PATIENT
  Age: 62 Year
  Sex: Female

DRUGS (1)
  1. IBRANCE [Suspect]
     Active Substance: PALBOCICLIB
     Dosage: 125 MG (TAKE TWO WEEKS OFF IBRANCE, INSTEAD OF ONE)
     Dates: start: 20201216

REACTIONS (3)
  - Neutrophil count decreased [Unknown]
  - Nausea [Unknown]
  - Constipation [Unknown]
